FAERS Safety Report 22237920 (Version 1)
Quarter: 2023Q2

REPORT INFORMATION
  Report Type: Spontaneous
  Country: US (occurrence: US)
  Receive Date: 20230421
  Receipt Date: 20230421
  Transmission Date: 20230722
  Serious: No
  Sender: FDA-Public Use
  Company Number: US-Merck Healthcare KGaA-9396727

PATIENT
  Sex: Female

DRUGS (1)
  1. OVIDREL [Suspect]
     Active Substance: CHORIOGONADOTROPIN ALFA
     Indication: Delayed follicular ripening

REACTIONS (3)
  - Muscle spasms [Unknown]
  - Reaction to excipient [Unknown]
  - Off label use [Unknown]
